FAERS Safety Report 17212667 (Version 5)
Quarter: 2020Q1

REPORT INFORMATION
  Report Type: Report from Study
  Country: CA (occurrence: CA)
  Receive Date: 20191230
  Receipt Date: 20200317
  Transmission Date: 20200409
  Serious: Yes (Hospitalization, Other)
  Sender: FDA-Public Use
  Company Number: NVSC2019CA008918

PATIENT
  Age: 58 Year
  Sex: Male

DRUGS (5)
  1. CORTISONE [Concomitant]
     Active Substance: CORTISONE
     Indication: PRODUCT USED FOR UNKNOWN INDICATION
     Dosage: UNK
     Route: 065
  2. PLAQUENIL [Concomitant]
     Active Substance: HYDROXYCHLOROQUINE SULFATE
     Indication: PRODUCT USED FOR UNKNOWN INDICATION
     Route: 065
  3. METHOTREXATE. [Concomitant]
     Active Substance: METHOTREXATE
     Indication: PRODUCT USED FOR UNKNOWN INDICATION
     Dosage: UNK
     Route: 065
     Dates: start: 20180507
  4. NAPROXEN. [Concomitant]
     Active Substance: NAPROXEN
     Indication: PRODUCT USED FOR UNKNOWN INDICATION
     Route: 065
  5. ERELZI [Suspect]
     Active Substance: ETANERCEPT-SZZS
     Indication: RHEUMATOID ARTHRITIS
     Dosage: 50 MG, QW
     Route: 058
     Dates: start: 20191008

REACTIONS (26)
  - Asthenia [Unknown]
  - Kidney infection [Unknown]
  - Visual impairment [Unknown]
  - Pneumonia [Unknown]
  - Hallucination [Unknown]
  - Musculoskeletal stiffness [Unknown]
  - Ligament sprain [Unknown]
  - Drug ineffective [Unknown]
  - Cardiac valve disease [Unknown]
  - Dry throat [Unknown]
  - Cardiac disorder [Unknown]
  - Cardiac infection [Unknown]
  - Infection [Unknown]
  - Back pain [Unknown]
  - Immunodeficiency [Unknown]
  - Neck pain [Unknown]
  - Bacterial infection [Unknown]
  - Feeling abnormal [Unknown]
  - Musculoskeletal pain [Unknown]
  - Hypokinesia [Unknown]
  - Pain in extremity [Not Recovered/Not Resolved]
  - Eye disorder [Unknown]
  - Viral infection [Unknown]
  - Central nervous system infection [Unknown]
  - Dry mouth [Unknown]
  - Lip dry [Unknown]

NARRATIVE: CASE EVENT DATE: 2019
